FAERS Safety Report 5030518-2 (Version None)
Quarter: 2006Q2

REPORT INFORMATION
  Report Type: 
  Country: None (occurrence: None)
  Receive Date: 20060615
  Receipt Date: 20060531
  Transmission Date: 20061013
  Serious: Yes (Death, Other)
  Sender: FDA-Public Use
  Company Number: USA-2006-0024139

PATIENT
  Age: 26 Year
  Sex: Male
  Weight: 95.7 kg

DRUGS (6)
  1. OXYCODONE HCL [Suspect]
  2. METHADONE HCL [Suspect]
  3. NICOTINE [Suspect]
  4. DIPHENHYDRAMINE HCL [Suspect]
  5. OXYMORPHONE HYDROCHLORIDE [Suspect]
  6. CAFFEINE (CAFFEINE) [Suspect]

REACTIONS (5)
  - ACCIDENTAL DEATH [None]
  - BRAIN OEDEMA [None]
  - DRUG TOXICITY [None]
  - PULMONARY CONGESTION [None]
  - PULMONARY OEDEMA [None]
